FAERS Safety Report 26143072 (Version 1)
Quarter: 2025Q4

REPORT INFORMATION
  Report Type: Spontaneous
  Country: US (occurrence: US)
  Receive Date: 20251211
  Receipt Date: 20251211
  Transmission Date: 20260117
  Serious: No
  Sender: ALVOGEN
  Company Number: None

PATIENT

DRUGS (1)
  1. LEVOTHYROXINE [Suspect]
     Active Substance: LEVOTHYROXINE
     Indication: Thyroid disorder
     Dosage: 88 MCG?DISPENSED ON 06-AUG-2024
     Dates: start: 202408, end: 20241016

REACTIONS (10)
  - Chest discomfort [Unknown]
  - Asthenia [Unknown]
  - Oropharyngeal discomfort [Unknown]
  - Abdominal pain lower [Unknown]
  - Sleep disorder [Unknown]
  - Urticaria [Not Recovered/Not Resolved]
  - Dyspnoea [Unknown]
  - Fatigue [Unknown]
  - Weight decreased [Unknown]
  - Product substitution issue [Unknown]

NARRATIVE: CASE EVENT DATE: 20240101
